FAERS Safety Report 15891846 (Version 2)
Quarter: 2019Q1

REPORT INFORMATION
  Report Type: Spontaneous
  Country: US (occurrence: US)
  Receive Date: 20190130
  Receipt Date: 20190205
  Transmission Date: 20190417
  Serious: Yes (Hospitalization)
  Sender: FDA-Public Use
  Company Number: PHEH2019US003848

PATIENT
  Age: 71 Year
  Sex: Male
  Weight: 95.9 kg

DRUGS (2)
  1. LISINOPRIL. [Concomitant]
     Active Substance: LISINOPRIL
     Indication: PRODUCT USED FOR UNKNOWN INDICATION
     Dosage: 20 MG, QD
     Route: 065
  2. ENTRESTO [Suspect]
     Active Substance: SACUBITRIL\VALSARTAN
     Indication: LEFT VENTRICULAR FAILURE
     Dosage: 50 MG (24/26), QD
     Route: 048
     Dates: start: 20180621, end: 20181204

REACTIONS (3)
  - Underdose [Unknown]
  - Angioedema [Unknown]
  - Swollen tongue [Recovered/Resolved with Sequelae]

NARRATIVE: CASE EVENT DATE: 20181204
